FAERS Safety Report 8563483-1 (Version None)
Quarter: 2012Q3

REPORT INFORMATION
  Report Type: 
  Country: None (occurrence: None)
  Receive Date: 20120802
  Receipt Date: 20120731
  Transmission Date: 20120928
  Serious: Yes (Other)
  Sender: FDA-Public Use
  Company Number: US-SANOFI-AVENTIS-2012SA054933

PATIENT
  Sex: Female

DRUGS (2)
  1. ALL OTHER THERAPEUTIC PRODUCTS [Concomitant]
  2. PLAVIX [Suspect]
     Route: 065
     Dates: start: 20020101

REACTIONS (2)
  - CARDIAC FAILURE CONGESTIVE [None]
  - HIP FRACTURE [None]
